FAERS Safety Report 8462073-9 (Version None)
Quarter: 2012Q2

REPORT INFORMATION
  Report Type: 
  Country: None (occurrence: None)
  Receive Date: 20120625
  Receipt Date: 20120625
  Transmission Date: 20120825
  Serious: Yes (Hospitalization)
  Sender: FDA-Public Use
  Company Number: FR-PFIZER INC-2011US-44646

PATIENT
  Age: 91 Year
  Sex: Female

DRUGS (4)
  1. VERAPAMIL HCL [Suspect]
     Indication: CORONARY ARTERY DISEASE
     Dosage: UNK
     Route: 065
  2. ESOMEPRAZOLE [Concomitant]
  3. LORAZEPAM [Concomitant]
  4. FUROSEMIDE SODIUM [Concomitant]

REACTIONS (2)
  - LINEAR IGA DISEASE [None]
  - RASH [None]
